FAERS Safety Report 8440878 (Version 2)
Quarter: 2012Q4

REPORT INFORMATION
  Report Type: 
  Country: FR (occurrence: FR)
  Receive Date: 20120305
  Receipt Date: 20121001
  Transmission Date: 20130627
  Serious: Yes (Hospitalization, Disabling, Other)
  Sender: FDA-Public Use
  Company Number: FR-JNJFOC-20120213513

PATIENT
  Sex: Male
  Weight: 87 kg

DRUGS (5)
  1. REMICADE [Suspect]
     Indication: RHEUMATOID ARTHRITIS
     Route: 042
     Dates: start: 20090731, end: 20120308
  2. CORTANCYL [Concomitant]
     Indication: RHEUMATOID ARTHRITIS
     Route: 065
  3. ARAVA [Concomitant]
     Indication: RHEUMATOID ARTHRITIS
     Route: 065
  4. LODOZ [Concomitant]
     Indication: HYPERTENSION
     Route: 065
  5. VENLAFAXINE [Concomitant]
     Indication: HYPERTENSION
     Route: 065

REACTIONS (1)
  - Disseminated tuberculosis [Not Recovered/Not Resolved]
